FAERS Safety Report 23327732 (Version 1)
Quarter: 2023Q4

REPORT INFORMATION
  Report Type: Spontaneous
  Country: PL (occurrence: PL)
  Receive Date: 20231221
  Receipt Date: 20231221
  Transmission Date: 20240110
  Serious: Yes (Death)
  Sender: FDA-Public Use
  Company Number: None

PATIENT
  Age: 71 Year
  Sex: Female

DRUGS (3)
  1. PIPERACILLIN SODIUM\TAZOBACTAM SODIUM [Suspect]
     Active Substance: PIPERACILLIN SODIUM\TAZOBACTAM SODIUM
     Indication: Bacterial infection
     Dosage: 4.0G+0.5G (THE ONLY INFORMATION ABOUT DOSAGE)
     Route: 042
     Dates: start: 20231108, end: 20231108
  2. CALCIUM CHLORIDE\MAGNESIUM CHLORIDE\POTASSIUM CHLORIDE\SODIUM ACETATE\ [Concomitant]
     Active Substance: CALCIUM CHLORIDE\MAGNESIUM CHLORIDE\POTASSIUM CHLORIDE\SODIUM ACETATE\SODIUM CHLORIDE\SODIUM CITRATE
     Indication: Bacterial infection
     Dosage: 500ML
     Route: 042
     Dates: start: 20231108, end: 20231108
  3. ENOXAPARIN SODIUM [Concomitant]
     Active Substance: ENOXAPARIN SODIUM
     Indication: Bacterial infection
     Dosage: 40MG
     Route: 058
     Dates: start: 20231108, end: 20231108

REACTIONS (8)
  - Hypokalaemia [Fatal]
  - Blood pressure decreased [Fatal]
  - Oxygen saturation decreased [Fatal]
  - Communication disorder [Fatal]
  - Cough [Fatal]
  - Cardio-respiratory arrest [Fatal]
  - Subcutaneous emphysema [Fatal]
  - Dyspnoea [Fatal]

NARRATIVE: CASE EVENT DATE: 20231108
